FAERS Safety Report 9155573 (Version 3)
Quarter: 2013Q2

REPORT INFORMATION
  Report Type: Report from Study
  Country: US (occurrence: US)
  Receive Date: 20130311
  Receipt Date: 20130401
  Transmission Date: 20140414
  Serious: Yes (Hospitalization)
  Sender: FDA-Public Use
  Company Number: US-ABBOTT-13P-163-1058815-00

PATIENT
  Age: 47 Year
  Sex: Female
  Weight: 86.26 kg

DRUGS (12)
  1. HUMIRA [Suspect]
     Indication: CROHN^S DISEASE
     Dates: start: 2009, end: 2009
  2. HUMIRA [Suspect]
     Dates: start: 2009, end: 2009
  3. HUMIRA [Suspect]
     Dates: start: 2009, end: 2010
  4. HUMIRA [Suspect]
     Dates: start: 201109, end: 201109
  5. HUMIRA [Suspect]
     Dates: start: 201109, end: 201109
  6. HUMIRA [Suspect]
     Dates: start: 201109, end: 201208
  7. HUMIRA [Suspect]
     Dates: start: 201208, end: 20130207
  8. CYMBALTA [Concomitant]
     Indication: DEPRESSION
  9. OXYCODONE [Concomitant]
     Indication: PAIN
  10. CYCLOBENZAPRINE [Concomitant]
     Indication: CROHN^S DISEASE
  11. MULTIVITAMIN [Concomitant]
     Indication: VITAMIN SUPPLEMENTATION
  12. CALTRATE [Concomitant]
     Indication: MINERAL SUPPLEMENTATION

REACTIONS (23)
  - Pyrexia [Recovered/Resolved]
  - Skin discolouration [Recovered/Resolved]
  - Crohn^s disease [Recovered/Resolved]
  - Diarrhoea [Recovered/Resolved]
  - Local swelling [Recovered/Resolved]
  - Nausea [Recovered/Resolved]
  - Vomiting [Recovered/Resolved]
  - Joint swelling [Recovered/Resolved]
  - Back injury [Recovered/Resolved]
  - Mental disorder [Recovering/Resolving]
  - Intestinal obstruction [Recovered/Resolved]
  - Local swelling [Recovered/Resolved]
  - Malaise [Recovered/Resolved]
  - Sciatica [Recovered/Resolved]
  - Depression [Recovered/Resolved]
  - Mania [Not Recovered/Not Resolved]
  - Food craving [Recovered/Resolved]
  - Intestinal obstruction [Recovered/Resolved]
  - Breast mass [Not Recovered/Not Resolved]
  - Cholecystectomy [Unknown]
  - Benign neoplasm [Not Recovered/Not Resolved]
  - Withdrawal syndrome [Not Recovered/Not Resolved]
  - Pain [Not Recovered/Not Resolved]
